FAERS Safety Report 7407487-0 (Version None)
Quarter: 2011Q2

REPORT INFORMATION
  Report Type: 
  Country: None (occurrence: None)
  Receive Date: 20110412
  Receipt Date: 20110401
  Transmission Date: 20111010
  Serious: Yes (Other)
  Sender: FDA-Public Use
  Company Number: AR-AMGEN-ARGSP2011009350

PATIENT
  Age: 55 Year
  Sex: Female
  Weight: 76 kg

DRUGS (6)
  1. NAPROXEN [Concomitant]
     Dosage: 750 MG, 1X/DAY
     Route: 048
  2. LEFLUNOMIDE [Concomitant]
     Dosage: 20 MG, 1X/DAY
     Route: 048
  3. FOLIC ACID [Suspect]
     Dosage: UNK
  4. ENBREL [Suspect]
     Indication: RHEUMATOID ARTHRITIS
     Dosage: 50 MG, WEEKLY
     Route: 058
     Dates: start: 20050101
  5. BACTRIM [Suspect]
     Dosage: UNK
  6. RANITIDINE [Concomitant]
     Dosage: 300 MG, 1X/DAY
     Route: 048

REACTIONS (7)
  - HAEMORRHOIDS [None]
  - BLOOD URINE PRESENT [None]
  - RHEUMATOID NODULE [None]
  - NODULE [None]
  - THROAT IRRITATION [None]
  - BLISTER [None]
  - DIARRHOEA [None]
